FAERS Safety Report 10159484 (Version 3)
Quarter: 2014Q2

REPORT INFORMATION
  Report Type: Spontaneous
  Country: US (occurrence: US)
  Receive Date: 20140508
  Receipt Date: 20140509
  Transmission Date: 20141212
  Serious: Yes (Hospitalization)
  Sender: FDA-Public Use
  Company Number: US-CUBIST PHARMACEUTICAL, INC.-2010S1000145

PATIENT
  Sex: 0

DRUGS (3)
  1. CUBICIN [Suspect]
     Indication: RELAPSING-REMITTING MULTIPLE SCLEROSIS
     Dosage: 4 MG/KG, QD
     Route: 042
  2. CUBICIN [Suspect]
     Indication: OFF LABEL USE
     Dosage: 4 MG/KG, PER WEEK
     Route: 042
  3. CUBICIN [Suspect]
     Dosage: 4 MG/KG, QOW
     Route: 042

REACTIONS (1)
  - Device related infection [Unknown]
